FAERS Safety Report 5339879-8 (Version None)
Quarter: 2007Q2

REPORT INFORMATION
  Report Type: 
  Country: None (occurrence: None)
  Receive Date: 20070529
  Receipt Date: 20070514
  Transmission Date: 20071010
  Serious: Yes (Hospitalization, Disabling)
  Sender: FDA-Public Use
  Company Number: 2007PI000210

PATIENT
  Age: 78 Year
  Sex: Female

DRUGS (1)
  1. RETEPLASE (RETEPLASE) [Suspect]
     Indication: PULMONARY EMBOLISM
     Dosage: IV
     Route: 042
     Dates: start: 20070411

REACTIONS (2)
  - ISCHAEMIC CEREBRAL INFARCTION [None]
  - LOSS OF CONSCIOUSNESS [None]
